FAERS Safety Report 11780372 (Version 1)
Quarter: 2015Q4

REPORT INFORMATION
  Report Type: Spontaneous
  Country: US (occurrence: US)
  Receive Date: 20151126
  Receipt Date: 20151126
  Transmission Date: 20160305
  Serious: No
  Sender: FDA-Public Use
  Company Number: US-JNJFOC-20151005894

PATIENT
  Sex: Female

DRUGS (2)
  1. MOTRIN [Suspect]
     Active Substance: IBUPROFEN
     Indication: PRODUCT USED FOR UNKNOWN INDICATION
     Route: 048
     Dates: start: 20151006, end: 20151006
  2. MOTRIN [Suspect]
     Active Substance: IBUPROFEN
     Route: 048

REACTIONS (7)
  - Wrong patient received medication [Unknown]
  - Product use issue [Unknown]
  - Glossodynia [Unknown]
  - Throat irritation [Unknown]
  - Hypoaesthesia oral [Unknown]
  - Oral pruritus [Unknown]
  - Oral discomfort [Unknown]

NARRATIVE: CASE EVENT DATE: 20151006
